FAERS Safety Report 5833928-6 (Version None)
Quarter: 2008Q3

REPORT INFORMATION
  Report Type: 
  Country: None (occurrence: None)
  Receive Date: 20080805
  Receipt Date: 20080729
  Transmission Date: 20090109
  Serious: Yes (Hospitalization)
  Sender: FDA-Public Use
  Company Number: B0530949A

PATIENT
  Age: 58 Year
  Sex: Female

DRUGS (8)
  1. SERETIDE [Suspect]
     Indication: ASTHMA
     Dosage: 2PUFF TWICE PER DAY
     Route: 055
     Dates: start: 19960101
  2. VENTOLIN [Suspect]
     Indication: ASTHMA
     Route: 055
  3. ALENDRONIC ACID [Concomitant]
     Indication: DRUG USE FOR UNKNOWN INDICATION
     Route: 065
  4. CHOLESTEROL REDUCING AGENT [Concomitant]
     Route: 065
  5. UNKNOWN DRUG [Concomitant]
  6. ASPIRIN [Concomitant]
  7. PREDNISOLONE [Concomitant]
  8. UNKNOWN DRUG [Concomitant]
     Route: 065

REACTIONS (5)
  - ASTHMA [None]
  - CHEST DISCOMFORT [None]
  - COUGH [None]
  - DYSPNOEA [None]
  - WHEEZING [None]
